FAERS Safety Report 4851862-5 (Version None)
Quarter: 2005Q4

REPORT INFORMATION
  Report Type: 
  Country: None (occurrence: None)
  Receive Date: 20051125
  Receipt Date: 20050314
  Transmission Date: 20060501
  Serious: Yes (Hospitalization, Other)
  Sender: FDA-Public Use
  Company Number: 2005021889

PATIENT
  Sex: Female
  Weight: 81.6475 kg

DRUGS (14)
  1. TIKOSYN [Suspect]
     Indication: ATRIAL FIBRILLATION
     Dosage: 500 MG (250 MG, 2 IN 1 D), ORAL
     Route: 048
     Dates: start: 20050105
  2. METFORMIN HYDROCHLORIDE [Concomitant]
  3. INSULIN [Concomitant]
  4. LOSARTAN POTASSIUM [Concomitant]
  5. FUROSEMIDE [Concomitant]
  6. ATORVASTATIN [Concomitant]
  7. DIGOXIN [Concomitant]
  8. ASPIRIN [Concomitant]
  9. WARFARIN [Concomitant]
  10. LEVOTHYROXINE SODIUM [Concomitant]
  11. ATENOLOL [Concomitant]
  12. ATORVASTATIN [Concomitant]
  13. FUROSEMIDE [Concomitant]
  14. WARFARIN SODIUM [Concomitant]

REACTIONS (5)
  - ABDOMINAL PAIN UPPER [None]
  - ATRIAL FIBRILLATION [None]
  - FATIGUE [None]
  - FLATULENCE [None]
  - HEADACHE [None]
